FAERS Safety Report 17217619 (Version 1)
Quarter: 2019Q4

REPORT INFORMATION
  Report Type: Spontaneous
  Country: GB (occurrence: GB)
  Receive Date: 20191231
  Receipt Date: 20191231
  Transmission Date: 20200122
  Serious: Yes (Other)
  Sender: FDA-Public Use
  Company Number: GB-TEVA-2019-GB-1159749

PATIENT
  Age: 67 Year
  Sex: Female

DRUGS (2)
  1. DOXYCYCLINE. [Suspect]
     Active Substance: DOXYCYCLINE
     Dosage: 100 MG
     Route: 065
  2. DOXYCYCLINE. [Suspect]
     Active Substance: DOXYCYCLINE
     Dosage: 200 MG START
     Route: 065

REACTIONS (14)
  - Syncope [Unknown]
  - Vomiting [Unknown]
  - Abnormal loss of weight [Unknown]
  - Haematochezia [Unknown]
  - Nausea [Unknown]
  - Headache [Unknown]
  - Abnormal faeces [Unknown]
  - Epigastric discomfort [Unknown]
  - Anal incontinence [Unknown]
  - Diarrhoea [Unknown]
  - Pallor [Unknown]
  - Mucous stools [Unknown]
  - Flatulence [Unknown]
  - Abdominal pain [Unknown]
